FAERS Safety Report 9061351 (Version 1)
Quarter: 2013Q1

REPORT INFORMATION
  Report Type: Spontaneous
  Country: US (occurrence: None)
  Receive Date: 20130208
  Receipt Date: 20130208
  Transmission Date: 20140127
  Serious: Yes (Other)
  Sender: FDA-Public Use
  Company Number: None

PATIENT
  Age: 67 Year
  Sex: Female
  Weight: 62.14 kg

DRUGS (2)
  1. AZITHROMYCIN [Suspect]
     Indication: SINUSITIS
     Dosage: 2 TABLETS DAY 1
     Route: 048
     Dates: start: 20130204, end: 20130205
  2. AZITHROMYCIN [Suspect]
     Indication: PYREXIA
     Dosage: 2 TABLETS DAY 1
     Route: 048
     Dates: start: 20130204, end: 20130205

REACTIONS (4)
  - Chest pain [None]
  - Feeling abnormal [None]
  - Back pain [None]
  - Musculoskeletal pain [None]
